FAERS Safety Report 23978078 (Version 1)
Quarter: 2024Q2

REPORT INFORMATION
  Report Type: Spontaneous
  Country: US (occurrence: None)
  Receive Date: 20240614
  Receipt Date: 20240614
  Transmission Date: 20240715
  Serious: Yes (Other)
  Sender: FDA-Public Use
  Company Number: None

PATIENT
  Age: 48 Year
  Sex: Female
  Weight: 99.79 kg

DRUGS (1)
  1. QULIPTA [Suspect]
     Active Substance: ATOGEPANT
     Dates: start: 20240612, end: 20240613

REACTIONS (3)
  - Nausea [None]
  - Cystitis interstitial [None]
  - Condition aggravated [None]

NARRATIVE: CASE EVENT DATE: 20240612
